FAERS Safety Report 8974241 (Version 1)
Quarter: 2012Q4

REPORT INFORMATION
  Report Type: Spontaneous
  Country: US (occurrence: None)
  Receive Date: 20121217
  Receipt Date: 20121217
  Transmission Date: 20130627
  Serious: Yes (Hospitalization, Other)
  Sender: FDA-Public Use
  Company Number: None

PATIENT
  Age: 44 Year
  Sex: Female
  Weight: 122.47 kg

DRUGS (1)
  1. EXFORGE HCT [Suspect]
     Indication: BLOOD PRESSURE HIGH
     Dates: start: 201006, end: 201009

REACTIONS (3)
  - Eye disorder [None]
  - Blood glucose abnormal [None]
  - Renal disorder [None]
